FAERS Safety Report 7536198-6 (Version None)
Quarter: 2011Q2

REPORT INFORMATION
  Report Type: 
  Country: None (occurrence: None)
  Receive Date: 20110602
  Receipt Date: 20110520
  Transmission Date: 20111010
  Serious: Yes (Death)
  Sender: FDA-Public Use
  Company Number: 2011BN000051

PATIENT
  Age: 49 Year

DRUGS (7)
  1. ANTI-THYMOCYTE GLOBULIN NOS [Concomitant]
  2. MELPHALAN HYDROCHLORIDE [Suspect]
     Indication: BONE MARROW CONDITIONING REGIMEN
     Dosage: 40 MG/M**2; QD;
  3. PREDNISONE [Concomitant]
  4. MYCOPHENOLATE MOFETIL [Suspect]
     Indication: PROPHYLAXIS AGAINST TRANSPLANT REJECTION
  5. TACROLIMUS [Suspect]
     Indication: PROPHYLAXIS AGAINST TRANSPLANT REJECTION
  6. CYCLOSPORINE [Concomitant]
  7. FLUDARABINE PHOSPHATE [Suspect]
     Indication: BONE MARROW CONDITIONING REGIMEN
     Dosage: 25 MG/M**2; QD;

REACTIONS (1)
  - IDIOPATHIC PNEUMONIA SYNDROME [None]
